FAERS Safety Report 12670251 (Version 1)
Quarter: 2016Q3

REPORT INFORMATION
  Report Type: Spontaneous
  Country: DK (occurrence: DK)
  Receive Date: 20160821
  Receipt Date: 20160821
  Transmission Date: 20161109
  Serious: Yes (Hospitalization)
  Sender: FDA-Public Use
  Company Number: DK-MYLANLABS-2016M1034541

PATIENT

DRUGS (8)
  1. CLOZAPINE. [Suspect]
     Active Substance: CLOZAPINE
     Dosage: 25 MG, QD
     Route: 048
     Dates: end: 20150715
  2. CLOZAPINE. [Suspect]
     Active Substance: CLOZAPINE
     Dosage: 100 MG, QD
     Route: 048
     Dates: end: 20150715
  3. ALFACALCIDOL ALTERNOVA [Concomitant]
     Indication: CALCIUM METABOLISM DISORDER
     Dates: start: 20150401
  4. ELTROXIN [Concomitant]
     Active Substance: LEVOTHYROXINE
     Indication: MYXOEDEMA
     Dates: start: 201008
  5. CLOZAPINE. [Suspect]
     Active Substance: CLOZAPINE
     Indication: SCHIZOPHRENIA
     Dosage: 12.5 MG, QD
     Route: 048
     Dates: start: 20150701
  6. SEROQUEL [Concomitant]
     Active Substance: QUETIAPINE FUMARATE
     Indication: SCHIZOPHRENIA
     Dates: start: 20150429
  7. FEMSEPTCOMBI [Concomitant]
     Indication: PRODUCT USED FOR UNKNOWN INDICATION
     Dates: start: 20150413
  8. UNIKALK PLUS [Concomitant]
     Indication: MINERAL SUPPLEMENTATION
     Route: 065

REACTIONS (13)
  - Ejection fraction decreased [Recovered/Resolved]
  - Eosinopenia [Recovered/Resolved]
  - Myocarditis [Recovering/Resolving]
  - Myocardial necrosis marker increased [Recovered/Resolved]
  - Pyrexia [Unknown]
  - Cardiomyopathy [Recovered/Resolved]
  - Tachycardia [Unknown]
  - Electrocardiogram QT prolonged [Recovered/Resolved]
  - Electrocardiogram T wave inversion [Recovered/Resolved]
  - Malaise [Unknown]
  - Arthropod bite [Unknown]
  - Influenza like illness [Recovered/Resolved]
  - Fatigue [Unknown]

NARRATIVE: CASE EVENT DATE: 201507
